FAERS Safety Report 10649096 (Version 1)
Quarter: 2014Q4

REPORT INFORMATION
  Report Type: Spontaneous
  Country: CA (occurrence: None)
  Receive Date: 20141210
  Receipt Date: 20141210
  Transmission Date: 20150529
  Serious: Yes (Other)
  Sender: FDA-Public Use
  Company Number: CA-017910

PATIENT
  Age: 67 Year
  Sex: Male

DRUGS (1)
  1. FIRMAGON [Suspect]
     Active Substance: DEGARELIX ACETATE
     Indication: PROSTATE CANCER
     Route: 058
     Dates: start: 20140801

REACTIONS (7)
  - Dry mouth [None]
  - Pallor [None]
  - Dizziness [None]
  - Urine output decreased [None]
  - Abasia [None]
  - Fluid retention [None]
  - Decreased appetite [None]

NARRATIVE: CASE EVENT DATE: 20141125
